FAERS Safety Report 4651360-8 (Version None)
Quarter: 2005Q2

REPORT INFORMATION
  Report Type: 
  Country: None (occurrence: None)
  Receive Date: 20050503
  Receipt Date: 20050412
  Transmission Date: 20051028
  Serious: Yes (Hospitalization)
  Sender: FDA-Public Use
  Company Number: FR-ABBOTT-05P-056-0297188-00

PATIENT
  Age: 73 Year
  Sex: Male
  Weight: 84 kg

DRUGS (5)
  1. LIPANTHYL [Suspect]
     Indication: LIPIDS ABNORMAL
     Route: 048
     Dates: start: 19940101, end: 20041220
  2. KETOPROFEN [Suspect]
     Indication: OSTEOARTHRITIS
     Route: 048
     Dates: start: 19960101, end: 20040101
  3. ALLOPURINOL [Suspect]
     Indication: DRUG USE FOR UNKNOWN INDICATION
     Route: 048
     Dates: start: 19950101, end: 20040101
  4. ACETAMINOPHEN W/ PROPOXYPHENE HCL [Suspect]
     Indication: DRUG USE FOR UNKNOWN INDICATION
     Route: 048
     Dates: start: 19960101, end: 20040101
  5. SECTRAL [Suspect]
     Indication: HYPERTENSION
     Route: 048
     Dates: start: 19940101, end: 20041220

REACTIONS (11)
  - ARTHROPOD BITE [None]
  - DIARRHOEA [None]
  - ECZEMA [None]
  - ERYTHEMA [None]
  - FACE OEDEMA [None]
  - MASS [None]
  - OEDEMA PERIPHERAL [None]
  - PRURITUS [None]
  - SKIN EXFOLIATION [None]
  - TOXIC SKIN ERUPTION [None]
  - UNEVALUABLE EVENT [None]
